APPROVED DRUG PRODUCT: PHENERGAN VC W/ CODEINE
Active Ingredient: CODEINE PHOSPHATE; PHENYLEPHRINE HYDROCHLORIDE; PROMETHAZINE HYDROCHLORIDE
Strength: 10MG/5ML;5MG/5ML;6.25MG/5ML **Federal Register determination that product was not discontinued or withdrawn for safety or effectiveness reasons**
Dosage Form/Route: SYRUP;ORAL
Application: N008306 | Product #005
Applicant: ANI PHARMACEUTICALS INC
Approved: Apr 2, 1984 | RLD: Yes | RS: No | Type: DISCN